APPROVED DRUG PRODUCT: ELDEPRYL
Active Ingredient: SELEGILINE HYDROCHLORIDE
Strength: 5MG **Federal Register determination that product was not discontinued or withdrawn for safety or effectiveness reasons**
Dosage Form/Route: CAPSULE;ORAL
Application: N020647 | Product #001
Applicant: QUAGEN PHARMACEUTICALS LLC
Approved: May 15, 1996 | RLD: Yes | RS: No | Type: DISCN